FAERS Safety Report 15580110 (Version 1)
Quarter: 2018Q4

REPORT INFORMATION
  Report Type: Spontaneous
  Country: US (occurrence: US)
  Receive Date: 20181102
  Receipt Date: 20181102
  Transmission Date: 20190205
  Serious: Yes (Disabling)
  Sender: FDA-Public Use
  Company Number: None

PATIENT
  Age: 51 Year
  Sex: Female
  Weight: 86.4 kg

DRUGS (5)
  1. NICODERM CQ [Suspect]
     Active Substance: NICOTINE
     Indication: ATTENTION DEFICIT/HYPERACTIVITY DISORDER
     Dosage: ?          QUANTITY:1 PATCH(ES);?
     Route: 061
  2. CLARITIN [Concomitant]
     Active Substance: LORATADINE
  3. OMEPRAZOLE. [Concomitant]
     Active Substance: OMEPRAZOLE
  4. PAXIL [Concomitant]
     Active Substance: PAROXETINE HYDROCHLORIDE
  5. MULTIVITAMIN WITH IRON [Concomitant]
     Active Substance: IRON\VITAMINS

REACTIONS (2)
  - Application site rash [None]
  - Product substitution issue [None]

NARRATIVE: CASE EVENT DATE: 20181101
